FAERS Safety Report 8223389-4 (Version None)
Quarter: 2012Q1

REPORT INFORMATION
  Report Type: 
  Country: None (occurrence: None)
  Receive Date: 20120321
  Receipt Date: 20120314
  Transmission Date: 20120608
  Serious: Yes (Life-Threatening, Hospitalization)
  Sender: FDA-Public Use
  Company Number: SE-CELGENEUS-150-21880-12031664

PATIENT
  Sex: Male
  Weight: 78 kg

DRUGS (12)
  1. REVLIMID [Suspect]
     Dosage: 25 MILLIGRAM
     Route: 048
     Dates: start: 20120201, end: 20120221
  2. VALTREX [Concomitant]
     Indication: ANTIVIRAL PROPHYLAXIS
     Dosage: 500 MILLIGRAM
     Route: 048
     Dates: start: 20111012
  3. REVLIMID [Suspect]
     Indication: MULTIPLE MYELOMA
     Dosage: 25 MILLIGRAM
     Route: 048
     Dates: start: 20111013, end: 20111102
  4. OMEPRAZOLE [Concomitant]
     Indication: PROPHYLAXIS
     Dosage: 20 MILLIGRAM
     Route: 048
     Dates: start: 20111012
  5. PLAVIX [Concomitant]
     Dosage: 75 MILLIGRAM
     Route: 048
     Dates: start: 20120214
  6. CARFILZOMIB [Suspect]
     Dosage: 49 MILLIGRAM
     Route: 065
     Dates: start: 20111020, end: 20111028
  7. DEXAMETHASONE [Suspect]
     Dosage: 40 MILLIGRAM
     Route: 065
     Dates: start: 20120201, end: 20120222
  8. INOLAXOL [Concomitant]
     Indication: CONSTIPATION
     Route: 048
     Dates: start: 20120201
  9. ASPIRIN [Concomitant]
     Indication: ANTIPLATELET THERAPY
     Dosage: 75 MILLIGRAM
     Route: 048
     Dates: start: 20111012, end: 20120314
  10. CARFILZOMIB [Suspect]
     Indication: MULTIPLE MYELOMA
     Dosage: 36 MILLIGRAM
     Route: 065
     Dates: start: 20111013, end: 20111014
  11. CARFILZOMIB [Suspect]
     Dosage: 49 MILLIGRAM
     Route: 065
     Dates: start: 20120229
  12. DEXAMETHASONE [Suspect]
     Indication: MULTIPLE MYELOMA
     Dosage: 40 MILLIGRAM
     Route: 065
     Dates: start: 20111013, end: 20111103

REACTIONS (1)
  - CEREBROVASCULAR ACCIDENT [None]
